FAERS Safety Report 8576757-5 (Version None)
Quarter: 2012Q3

REPORT INFORMATION
  Report Type: 
  Country: None (occurrence: None)
  Receive Date: 20120807
  Receipt Date: 20120802
  Transmission Date: 20120928
  Serious: No
  Sender: FDA-Public Use
  Company Number: US-009507513-1006USA00771

PATIENT

DRUGS (3)
  1. REBIF [Concomitant]
  2. FOSAMAX [Suspect]
     Route: 048
     Dates: start: 20000101, end: 20090101
  3. FOSAMAX [Suspect]
     Route: 048
     Dates: start: 20090101, end: 20100401

REACTIONS (5)
  - SPEECH DISORDER [None]
  - ORAL PAIN [None]
  - TOOTH DISORDER [None]
  - PURULENCE [None]
  - LIP SWELLING [None]
